FAERS Safety Report 7490694-9 (Version None)
Quarter: 2011Q2

REPORT INFORMATION
  Report Type: 
  Country: None (occurrence: None)
  Receive Date: 20110519
  Receipt Date: 20110507
  Transmission Date: 20111010
  Serious: Yes (Other)
  Sender: FDA-Public Use
  Company Number: PT-JNJFOC-20101105241

PATIENT
  Age: 77 Year
  Sex: Male
  Weight: 58 kg

DRUGS (7)
  1. LEVOFLOXACIN [Suspect]
     Indication: PNEUMONIA
     Route: 065
  2. ALBUTEROL [Concomitant]
     Route: 065
  3. FINASTERIDE [Concomitant]
     Route: 065
  4. SALMETEROL+FLUTICASONE [Concomitant]
     Indication: PRODUCT USED FOR UNKNOWN INDICATION
     Dosage: SALMETEROL 50 UG PLUS FLUTICASONE 250 UG
     Route: 065
  5. AMLODIPINE [Concomitant]
     Route: 065
  6. SIMVASTATIN [Concomitant]
     Route: 065
  7. ALFUZOSIN HCL [Concomitant]
     Route: 065

REACTIONS (1)
  - HEPATITIS ACUTE [None]
